FAERS Safety Report 25548717 (Version 1)
Quarter: 2025Q3

REPORT INFORMATION
  Report Type: Spontaneous
  Country: GB (occurrence: GB)
  Receive Date: 20250714
  Receipt Date: 20250714
  Transmission Date: 20251021
  Serious: Yes (Hospitalization, Other)
  Sender: ELI LILLY AND COMPANY
  Company Number: None

PATIENT
  Sex: Female

DRUGS (3)
  1. MOUNJARO [Suspect]
     Active Substance: TIRZEPATIDE
     Indication: Binge eating
     Route: 065
     Dates: start: 20220301
  2. MOUNJARO [Suspect]
     Active Substance: TIRZEPATIDE
     Indication: Binge eating
     Route: 065
     Dates: end: 20241224
  3. HUMIRA [Concomitant]
     Active Substance: ADALIMUMAB
     Indication: Psoriatic arthropathy
     Dates: start: 20210505

REACTIONS (3)
  - Pancreatitis acute [Recovered/Resolved with Sequelae]
  - Lung disorder [Unknown]
  - Off label use [Unknown]

NARRATIVE: CASE EVENT DATE: 20240301
